FAERS Safety Report 8086019 (Version 6)
Quarter: 2013Q4

REPORT INFORMATION
  Report Type: Spontaneous
  Country: US (occurrence: US)
  Receive Date: 20110811
  Receipt Date: 20131121
  Transmission Date: 20140711
  Serious: Yes (Hospitalization, Other)
  Sender: FDA-Public Use
  Company Number: US-ROCHE-795918

PATIENT
  Age: 33 Year
  Sex: Female
  Weight: 67.19 kg

DRUGS (2)
  1. ACCUTANE [Suspect]
     Indication: ACNE
     Route: 065
     Dates: start: 19980413, end: 19980827
  2. ACCUTANE [Suspect]
     Route: 065
     Dates: start: 199910, end: 200002

REACTIONS (9)
  - Colitis ulcerative [Unknown]
  - Crohn^s disease [Unknown]
  - Inflammatory bowel disease [Unknown]
  - Depression [Unknown]
  - Injury [Unknown]
  - Blood triglycerides increased [Unknown]
  - Dry skin [Unknown]
  - Aspartate aminotransferase increased [Recovered/Resolved]
  - Acne [Unknown]
